FAERS Safety Report 5081310-4 (Version None)
Quarter: 2006Q3

REPORT INFORMATION
  Report Type: 
  Country: None (occurrence: None)
  Receive Date: 20060810
  Receipt Date: 20060727
  Transmission Date: 20061208
  Serious: Yes (Death)
  Sender: FDA-Public Use
  Company Number: 2781

PATIENT
  Age: 77 Year
  Sex: Male
  Weight: 68.0396 kg

DRUGS (1)
  1. AMNESTEEM [Suspect]
     Indication: MYCOSIS FUNGOIDES
     Dosage: 40 MG QD PO
     Route: 048

REACTIONS (1)
  - NO ADVERSE DRUG EFFECT [None]
